FAERS Safety Report 13949288 (Version 1)
Quarter: 2017Q3

REPORT INFORMATION
  Report Type: Spontaneous
  Country: US (occurrence: US)
  Receive Date: 20170908
  Receipt Date: 20170908
  Transmission Date: 20171128
  Serious: No
  Sender: FDA-Public Use
  Company Number: US-ROCHE-1137002

PATIENT
  Sex: Female

DRUGS (6)
  1. RITUXAN [Suspect]
     Active Substance: RITUXIMAB
     Indication: NON-HODGKIN^S LYMPHOMA
     Route: 065
     Dates: start: 19980408
  2. RITUXAN [Suspect]
     Active Substance: RITUXIMAB
     Route: 065
     Dates: start: 19980423
  3. RITUXAN [Suspect]
     Active Substance: RITUXIMAB
     Route: 065
     Dates: start: 19980429
  4. RITUXAN [Suspect]
     Active Substance: RITUXIMAB
     Route: 065
     Dates: start: 19980415
  5. REZULIN [Concomitant]
     Active Substance: TROGLITAZONE
     Route: 048
  6. NPH (INSULIN) [Concomitant]
     Dosage: 70/30
     Route: 065

REACTIONS (5)
  - Diarrhoea [Recovering/Resolving]
  - Dizziness [Unknown]
  - Muscular weakness [Unknown]
  - Musculoskeletal chest pain [Unknown]
  - Asthenia [Unknown]
